FAERS Safety Report 7903633-0 (Version None)
Quarter: 2011Q4

REPORT INFORMATION
  Report Type: 
  Country: None (occurrence: None)
  Receive Date: 20111109
  Receipt Date: 20111103
  Transmission Date: 20120403
  Serious: Yes (Death)
  Sender: FDA-Public Use
  Company Number: PL-PFIZER INC-2011269942

PATIENT
  Age: 49 Year
  Sex: Male

DRUGS (7)
  1. CEFOTAXIME [Suspect]
     Dosage: 2 G, 3X/DAY
  2. MANNITOL [Suspect]
  3. PAROXETINE HCL [Suspect]
  4. CEFOPERAZONE SODIUM AND SULBACTAM SODIUM [Suspect]
     Indication: WOUND INFECTION STAPHYLOCOCCAL
  5. PREDNISONE [Suspect]
     Dosage: 60 MG, 1X/DAY
  6. VANCOMYCIN HCL [Suspect]
     Indication: WOUND INFECTION STAPHYLOCOCCAL
  7. DEXAMETHASONE [Suspect]

REACTIONS (1)
  - DRUG INEFFECTIVE [None]
